FAERS Safety Report 5345631-X (Version None)
Quarter: 2007Q2

REPORT INFORMATION
  Report Type: 
  Country: None (occurrence: None)
  Receive Date: 20070605
  Receipt Date: 20061004
  Transmission Date: 20071010
  Serious: Yes (Disabling)
  Sender: FDA-Public Use
  Company Number: US-ASTRAZENECA-2006UW18003

PATIENT
  Age: 58 Year
  Sex: Female

DRUGS (16)
  1. PRILOSEC [Suspect]
     Indication: GASTROOESOPHAGEAL REFLUX DISEASE
     Route: 048
     Dates: end: 20060831
  2. PRILOSEC [Suspect]
     Dosage: 1/2 DOSE
     Route: 048
     Dates: start: 20060903, end: 20060903
  3. PRILOSEC OTC [Suspect]
     Indication: GASTROOESOPHAGEAL REFLUX DISEASE
     Route: 048
     Dates: end: 20060831
  4. PRILOSEC OTC [Suspect]
     Dosage: 1/2 DOSE
     Route: 048
     Dates: start: 20060903, end: 20060903
  5. TRIAMTERENE AND HYDROCHLOROTHIAZIDE [Concomitant]
     Dosage: 37.5/25 MG
  6. POTASSIUM ACETATE [Concomitant]
  7. AMITRIPTYLINE HCL [Concomitant]
     Dates: end: 20060701
  8. CHELATED MINERALS [Concomitant]
     Dosage: 3 A DAY
  9. PROFLAVANOL 90 [Concomitant]
     Dosage: 2 A DAY
  10. MEGA ANTIOXIDANT [Concomitant]
  11. ACTIVE CALCIUM [Concomitant]
     Dosage: 4 A DAY
  12. BIOMEGA-3 [Concomitant]
     Dosage: 2 A DAY
  13. COQUINONE 30 [Concomitant]
     Dosage: 1 A DAY
  14. MECLIZINE [Concomitant]
  15. DIAZEPAM [Concomitant]
  16. PAIN MEDICINE [Concomitant]

REACTIONS (33)
  - AMNESIA [None]
  - ARTHRALGIA [None]
  - ARTHRITIS [None]
  - ARTHROPOD BITE [None]
  - ASTHENIA [None]
  - BALANCE DISORDER [None]
  - COUGH [None]
  - DIZZINESS [None]
  - DIZZINESS POSTURAL [None]
  - DRY MOUTH [None]
  - DRY SKIN [None]
  - DYSPNOEA [None]
  - GAIT DISTURBANCE [None]
  - HAIR TEXTURE ABNORMAL [None]
  - HYPERSENSITIVITY [None]
  - HYPOAESTHESIA [None]
  - INSOMNIA [None]
  - MUSCLE SPASMS [None]
  - MUSCULOSKELETAL PAIN [None]
  - NASAL CONGESTION [None]
  - NASOPHARYNGITIS [None]
  - NECK PAIN [None]
  - ONYCHOCLASIS [None]
  - PAIN [None]
  - PAIN IN EXTREMITY [None]
  - PANIC ATTACK [None]
  - PHARYNGOLARYNGEAL PAIN [None]
  - SPINAL CORD COMPRESSION [None]
  - TREMOR [None]
  - VERTIGO [None]
  - VERTIGO POSITIONAL [None]
  - VISION BLURRED [None]
  - WEIGHT LOSS POOR [None]
